FAERS Safety Report 8982742 (Version 1)
Quarter: 2012Q4

REPORT INFORMATION
  Report Type: 
  Country: ES (occurrence: ES)
  Receive Date: 20121224
  Receipt Date: 20121224
  Transmission Date: 20130627
  Serious: Yes (Hospitalization)
  Sender: FDA-Public Use
  Company Number: ES-ROCHE-1173853

PATIENT
  Age: 78 Year
  Sex: Male

DRUGS (8)
  1. LUCENTIS [Suspect]
     Indication: AGE-RELATED MACULAR DEGENERATION
     Route: 050
     Dates: start: 20120611
  2. SIMVASTATIN [Concomitant]
  3. METFORMIN [Concomitant]
  4. OMEPRAZOLE [Concomitant]
  5. ATENOLOL [Concomitant]
  6. OMNIC [Concomitant]
  7. SEGURIL [Concomitant]
  8. SINTROM [Concomitant]

REACTIONS (1)
  - Peripheral ischaemia [Unknown]
